FAERS Safety Report 10867440 (Version 1)
Quarter: 2015Q1

REPORT INFORMATION
  Report Type: Spontaneous
  Country: IE (occurrence: IE)
  Receive Date: 20150225
  Receipt Date: 20150225
  Transmission Date: 20150721
  Serious: No
  Sender: FDA-Public Use
  Company Number: IE-JNJFOC-20150207698

PATIENT

DRUGS (1)
  1. DUROGESIC D TRANS PATCH [Suspect]
     Active Substance: FENTANYL
     Indication: PRODUCT USED FOR UNKNOWN INDICATION
     Route: 062

REACTIONS (3)
  - Product name confusion [Unknown]
  - Accidental exposure to product [Unknown]
  - Medication error [None]
